FAERS Safety Report 13886119 (Version 6)
Quarter: 2019Q3

REPORT INFORMATION
  Report Type: Report from Study
  Country: ZA (occurrence: ZA)
  Receive Date: 20170821
  Receipt Date: 20190913
  Transmission Date: 20191004
  Serious: Yes (Death, Hospitalization)
  Sender: FDA-Public Use
  Company Number: PHHY2017ZA122600

PATIENT
  Age: 26 Year
  Sex: Female

DRUGS (6)
  1. DESFERAL [Suspect]
     Active Substance: DEFEROXAMINE MESYLATE
     Dosage: 6 VIALS 5X PER WEEK VIA SYRING
     Route: 065
     Dates: start: 1994, end: 20180415
  2. DESFERAL [Suspect]
     Active Substance: DEFEROXAMINE MESYLATE
     Dosage: 6 VIALS 4X PER WEEK VIA SYRINGE
     Route: 065
     Dates: start: 20180416
  3. DESFERAL [Suspect]
     Active Substance: DEFEROXAMINE MESYLATE
     Indication: THALASSAEMIA
     Dosage: 6 VIALS 7X PER WEEK VIA SYRING
     Route: 065
     Dates: start: 19941203
  4. FERRIPROX [Concomitant]
     Active Substance: DEFERIPRONE
     Indication: IRON OVERLOAD
     Dosage: 9 DF, QD
     Route: 065
  5. TRIMETHOPRIME [Concomitant]
     Active Substance: TRIMETHOPRIM
     Indication: SKIN INFECTION
     Route: 065
  6. EXJADE [Suspect]
     Active Substance: DEFERASIROX
     Indication: THALASSAEMIA
     Dosage: 2500 MG, UNK
     Route: 065
     Dates: start: 20180416

REACTIONS (12)
  - Laryngitis [Unknown]
  - Cough [Unknown]
  - Diarrhoea [Not Recovered/Not Resolved]
  - Inappropriate schedule of product administration [Unknown]
  - Fatigue [Recovered/Resolved]
  - Serum ferritin increased [Unknown]
  - Nausea [Not Recovered/Not Resolved]
  - Pneumonia [Fatal]
  - Sinusitis [Unknown]
  - Contusion [Unknown]
  - Skin induration [Unknown]
  - Vomiting [Not Recovered/Not Resolved]

NARRATIVE: CASE EVENT DATE: 201712
